FAERS Safety Report 9841000 (Version 1)
Quarter: 2013Q4

REPORT INFORMATION
  Report Type: Spontaneous
  Country: US (occurrence: None)
  Receive Date: 20131213
  Receipt Date: 20131213
  Transmission Date: 20140711
  Serious: Yes (Hospitalization)
  Sender: FDA-Public Use
  Company Number: 2013AP005036

PATIENT
  Age: 85 Year
  Sex: Female

DRUGS (3)
  1. LISINOPRIL [Suspect]
     Indication: HYPERTENSION
  2. COUMADIN SODIUM [Concomitant]
  3. LANOXIN [Concomitant]

REACTIONS (1)
  - Angioedema [None]
